FAERS Safety Report 14129535 (Version 1)
Quarter: 2017Q4

REPORT INFORMATION
  Report Type: Spontaneous
  Country: US (occurrence: US)
  Receive Date: 20171026
  Receipt Date: 20171026
  Transmission Date: 20180321
  Serious: Yes (Other)
  Sender: FDA-Public Use
  Company Number: US-PFIZER INC-2017455516

PATIENT
  Sex: Female

DRUGS (1)
  1. LEVOTHYROXINE SODIUM. [Suspect]
     Active Substance: LEVOTHYROXINE SODIUM
     Indication: HYPOTHYROIDISM
     Dosage: 112 UG, UNK
     Route: 048

REACTIONS (6)
  - Osteoarthritis [Unknown]
  - Bradycardia [Unknown]
  - Hypertension [Unknown]
  - Rheumatoid arthritis [Unknown]
  - Arrhythmia [Unknown]
  - Diarrhoea [Not Recovered/Not Resolved]
